FAERS Safety Report 16288240 (Version 8)
Quarter: 2019Q2

REPORT INFORMATION
  Report Type: Spontaneous
  Country: DE (occurrence: DE)
  Receive Date: 20190508
  Receipt Date: 20190620
  Transmission Date: 20190711
  Serious: Yes (Life-Threatening, Other)
  Sender: FDA-Public Use
  Company Number: PHHY2019DE105598

PATIENT
  Age: 75 Year
  Sex: Male

DRUGS (17)
  1. REMINYL [Interacting]
     Active Substance: GALANTAMINE
     Dosage: 5 MG, QD
     Route: 065
  2. AMLODIPIN [Concomitant]
     Active Substance: AMLODIPINE BESYLATE
     Indication: PRODUCT USED FOR UNKNOWN INDICATION
     Dosage: 5 MG, QD
     Route: 065
     Dates: end: 20090205
  3. CAPTOHEXAL [Interacting]
     Active Substance: CAPTOPRIL
     Indication: PRODUCT USED FOR UNKNOWN INDICATION
     Dosage: 50 MG, QD
     Route: 065
     Dates: end: 20090205
  4. DIPIPERON [Interacting]
     Active Substance: PIPAMPERONE
     Indication: PRODUCT USED FOR UNKNOWN INDICATION
     Dosage: 80 MG, QD
     Route: 065
     Dates: start: 20090219
  5. CIPRALEX [Interacting]
     Active Substance: ESCITALOPRAM OXALATE
     Dosage: 10 MG, QD
     Route: 065
     Dates: start: 20090210, end: 20090217
  6. ESIDRIX [Suspect]
     Active Substance: HYDROCHLOROTHIAZIDE
     Indication: PRODUCT USED FOR UNKNOWN INDICATION
     Dosage: 12.5 MG, QD
     Route: 065
     Dates: end: 20090226
  7. REMINYL [Interacting]
     Active Substance: GALANTAMINE
     Indication: PRODUCT USED FOR UNKNOWN INDICATION
     Dosage: 8 MG, QD
     Route: 065
     Dates: start: 20090219
  8. CIPRALEX [Interacting]
     Active Substance: ESCITALOPRAM OXALATE
     Dosage: 15 MG, QD
     Route: 065
     Dates: start: 20090218, end: 20090223
  9. ESIDRIX [Interacting]
     Active Substance: HYDROCHLOROTHIAZIDE
     Dosage: 25 MG, QD
     Route: 065
     Dates: start: 20090226
  10. TRAZODONE [Suspect]
     Active Substance: TRAZODONE HYDROCHLORIDE
     Indication: PRODUCT USED FOR UNKNOWN INDICATION
     Dosage: UNK
     Route: 065
  11. REMINYL [Interacting]
     Active Substance: GALANTAMINE
     Dosage: 2.5 MG, UNK
     Route: 065
  12. CALCIUM CARBONATE. [Concomitant]
     Active Substance: CALCIUM CARBONATE
     Indication: PRODUCT USED FOR UNKNOWN INDICATION
     Dosage: 2 DF, QD
     Route: 065
  13. CAPTOHEXAL [Interacting]
     Active Substance: CAPTOPRIL
     Dosage: 25 MG, QD
     Route: 065
     Dates: start: 20090206
  14. CIPRALEX [Interacting]
     Active Substance: ESCITALOPRAM OXALATE
     Indication: PRODUCT USED FOR UNKNOWN INDICATION
     Dosage: 5 MG, QD
     Route: 065
     Dates: start: 20090204, end: 20090209
  15. CIPRALEX [Interacting]
     Active Substance: ESCITALOPRAM OXALATE
     Dosage: 20 MG, QD
     Route: 065
     Dates: start: 20090224
  16. AMLODIPIN [Concomitant]
     Active Substance: AMLODIPINE BESYLATE
     Dosage: 2.5 MG, QD
     Route: 065
     Dates: start: 20090206
  17. MARCUMAR [Concomitant]
     Active Substance: PHENPROCOUMON
     Indication: PRODUCT USED FOR UNKNOWN INDICATION
     Dosage: UNK
     Route: 065

REACTIONS (5)
  - Torsade de pointes [Recovered/Resolved with Sequelae]
  - Syncope [Recovered/Resolved with Sequelae]
  - Electrocardiogram QT prolonged [Recovered/Resolved with Sequelae]
  - Cardio-respiratory arrest [Recovered/Resolved with Sequelae]
  - Drug interaction [Recovered/Resolved with Sequelae]

NARRATIVE: CASE EVENT DATE: 20090227
